FAERS Safety Report 10059046 (Version 2)
Quarter: 2014Q2

REPORT INFORMATION
  Report Type: Spontaneous
  Country: IT (occurrence: IT)
  Receive Date: 20140404
  Receipt Date: 20140404
  Transmission Date: 20141212
  Serious: Yes (Other)
  Sender: FDA-Public Use
  Company Number: IT-PFIZER INC-2014088370

PATIENT
  Sex: Female

DRUGS (2)
  1. TRIATEC [Suspect]
     Indication: HYPERTENSION
     Dosage: 2.5 MG, DAILY
     Route: 048
     Dates: start: 20120101
  2. CARDIOASPIRIN [Concomitant]
     Dosage: UNK

REACTIONS (6)
  - Blood pressure increased [Unknown]
  - Asthenia [Unknown]
  - Dysarthria [Unknown]
  - Vertigo [Unknown]
  - No therapeutic response [Unknown]
  - Dizziness [Unknown]
